FAERS Safety Report 8398022-1 (Version None)
Quarter: 2012Q2

REPORT INFORMATION
  Report Type: 
  Country: None (occurrence: None)
  Receive Date: 20120531
  Receipt Date: 20120524
  Transmission Date: 20120825
  Serious: Yes (Death)
  Sender: FDA-Public Use
  Company Number: US-PFIZER INC-2011023965

PATIENT
  Age: 17 Year
  Sex: Male

DRUGS (6)
  1. GABAPENTIN [Suspect]
     Dosage: DAILY; UNK
     Route: 048
  2. METHADONE HYDROCHLORIDE [Suspect]
     Dosage: DAILY; UNK
     Route: 048
  3. LOVASTATIN [Suspect]
     Dosage: DAILY; UNK
     Route: 048
  4. VENLAFAXINE HCL [Suspect]
     Dosage: DAILY; UNK
     Route: 048
  5. PROPRANOLOL HCL [Suspect]
     Dosage: DAILY; UNK
  6. FEXOFENADINE [Suspect]
     Dosage: DAILY; UNK
     Route: 048

REACTIONS (3)
  - COMPLETED SUICIDE [None]
  - RESPIRATORY ARREST [None]
  - CARDIAC ARREST [None]
